FAERS Safety Report 8215585-7 (Version None)
Quarter: 2012Q1

REPORT INFORMATION
  Report Type: 
  Country: None (occurrence: None)
  Receive Date: 20120316
  Receipt Date: 20120302
  Transmission Date: 20120608
  Serious: Yes (Hospitalization)
  Sender: FDA-Public Use
  Company Number: FR-ROCHE-1045544

PATIENT
  Age: 82 Year
  Sex: Female

DRUGS (2)
  1. COLCHICINE [Suspect]
     Indication: CRYSTAL ARTHROPATHY
     Route: 048
     Dates: start: 20111125
  2. ROCEPHIN [Suspect]
     Indication: PYELONEPHRITIS
     Dates: start: 20111125

REACTIONS (3)
  - LIP NEOPLASM [None]
  - DERMATITIS EXFOLIATIVE [None]
  - TRANSAMINASES INCREASED [None]
